FAERS Safety Report 9664958 (Version 2)
Quarter: 2013Q4

REPORT INFORMATION
  Report Type: Spontaneous
  Country: US (occurrence: US)
  Receive Date: 20131101
  Receipt Date: 20131101
  Transmission Date: 20140711
  Serious: Yes (Other)
  Sender: FDA-Public Use
  Company Number: PHEH2013US021563

PATIENT
  Age: 46 Year
  Sex: Male
  Weight: 68.48 kg

DRUGS (6)
  1. GILENYA [Suspect]
     Indication: RELAPSING-REMITTING MULTIPLE SCLEROSIS
     Dosage: 0.5 MG, QD
     Route: 048
     Dates: start: 20130201, end: 20131015
  2. TRAZODONE [Concomitant]
     Indication: INSOMNIA
     Dosage: 50 MG, UNK
     Route: 048
     Dates: start: 20131015
  3. FIORICET [Concomitant]
     Indication: HEADACHE
     Dosage: UNK DF, PRN
     Dates: start: 20131015
  4. AMLODIPINE BESYLATE [Concomitant]
     Dosage: 5 MG, UNK
     Route: 048
  5. PRAVASTATIN [Concomitant]
     Dosage: 40 MG, UNK
     Route: 048
  6. OMEPRAZOLE [Concomitant]
     Indication: GASTROOESOPHAGEAL REFLUX DISEASE
     Dosage: 20 MG, UNK
     Route: 048

REACTIONS (2)
  - Blindness unilateral [Unknown]
  - Macular oedema [Not Recovered/Not Resolved]
